FAERS Safety Report 25571442 (Version 1)
Quarter: 2025Q3

REPORT INFORMATION
  Report Type: Other
  Country: CA (occurrence: CA)
  Receive Date: 20250717
  Receipt Date: 20250717
  Transmission Date: 20251020
  Serious: Yes (Hospitalization, Other)
  Sender: ALVOGEN
  Company Number: CA-ALVOGEN-2025098345

PATIENT
  Age: 18 Year
  Sex: Female

DRUGS (2)
  1. LISDEXAMFETAMINE [Suspect]
     Active Substance: LISDEXAMFETAMINE
     Indication: Attention deficit hyperactivity disorder
     Route: 048
  2. LISDEXAMFETAMINE [Suspect]
     Active Substance: LISDEXAMFETAMINE
     Indication: Attention deficit hyperactivity disorder
     Route: 048

REACTIONS (7)
  - Stress cardiomyopathy [Recovering/Resolving]
  - Cardiogenic shock [Recovering/Resolving]
  - Cardiac failure acute [Recovering/Resolving]
  - Respiratory failure [Recovering/Resolving]
  - Suicide attempt [Unknown]
  - Intentional product misuse [Unknown]
  - Intentional overdose [Unknown]
